FAERS Safety Report 6873688-3 (Version None)
Quarter: 2010Q3

REPORT INFORMATION
  Report Type: 
  Country: None (occurrence: None)
  Receive Date: 20100723
  Receipt Date: 20090310
  Transmission Date: 20110219
  Serious: No
  Sender: FDA-Public Use
  Company Number: US-PFIZER INC-2009184814

PATIENT
  Sex: Male
  Weight: 90.703 kg

DRUGS (3)
  1. CHANTIX [Suspect]
     Indication: SMOKING CESSATION THERAPY
     Dosage: 1 MG, 2X/DAY
     Dates: start: 20090225
  2. CELEBREX [Concomitant]
     Dosage: UNK
  3. PRINZIDE [Concomitant]
     Dosage: UNK

REACTIONS (2)
  - NAUSEA [None]
  - RESTLESSNESS [None]
